FAERS Safety Report 9956146 (Version 1)
Quarter: 2014Q1

REPORT INFORMATION
  Report Type: Report from Study
  Country: US (occurrence: US)
  Receive Date: 20140304
  Receipt Date: 20140304
  Transmission Date: 20141002
  Serious: No
  Sender: FDA-Public Use
  Company Number: US-ABBVIE-13P-163-1091521-00

PATIENT
  Age: 52 Year
  Sex: Female

DRUGS (4)
  1. HUMIRA [Suspect]
     Indication: CROHN^S DISEASE
     Dates: start: 20130502, end: 20130502
  2. HUMIRA [Suspect]
  3. ENTOCORT [Concomitant]
     Indication: CROHN^S DISEASE
     Dosage: DAILY
     Route: 048
  4. EFFEXOR [Concomitant]
     Indication: INSOMNIA
     Dosage: DAILY
     Route: 048

REACTIONS (2)
  - Oropharyngeal pain [Not Recovered/Not Resolved]
  - Nasopharyngitis [Not Recovered/Not Resolved]
